FAERS Safety Report 19579882 (Version 12)
Quarter: 2022Q2

REPORT INFORMATION
  Report Type: Spontaneous
  Country: JP (occurrence: JP)
  Receive Date: 20210720
  Receipt Date: 20220614
  Transmission Date: 20220721
  Serious: Yes (Life-Threatening, Hospitalization, Other)
  Sender: FDA-Public Use
  Company Number: JP-BRISTOL-MYERS SQUIBB COMPANY-BMS-2021-069212

PATIENT
  Age: 63 Year
  Sex: Male
  Weight: 51.3 kg

DRUGS (9)
  1. YERVOY [Suspect]
     Active Substance: IPILIMUMAB
     Indication: Metastatic renal cell carcinoma
     Dosage: 50 MILLIGRAM, ONE TIME DOSE
     Route: 041
     Dates: start: 20210518, end: 20210518
  2. OPDIVO [Suspect]
     Active Substance: NIVOLUMAB
     Indication: Metastatic renal cell carcinoma
     Dosage: 240 MILLIGRAM, ONE TIME DOSE
     Route: 041
     Dates: start: 20210518, end: 20210518
  3. LOXOPROFEN [Concomitant]
     Active Substance: LOXOPROFEN
     Indication: Metastatic renal cell carcinoma
     Dosage: 60 MILLIGRAM, TID
     Route: 048
  4. REBAMIPIDE [Concomitant]
     Active Substance: REBAMIPIDE
     Indication: Metastatic renal cell carcinoma
     Dosage: 100 MILLIGRAM, TID
     Route: 048
  5. OLMESARTAN MEDOXOMIL [Concomitant]
     Active Substance: OLMESARTAN MEDOXOMIL
     Indication: Product used for unknown indication
     Dosage: 20 MILLIGRAM, QD
     Route: 048
  6. VONOPRAZAN FUMARATE [Concomitant]
     Active Substance: VONOPRAZAN FUMARATE
     Indication: Product used for unknown indication
     Dosage: 10 MILLIGRAM, QD
     Route: 048
  7. PREGABALIN [Concomitant]
     Active Substance: PREGABALIN
     Indication: Metastatic renal cell carcinoma
     Dosage: 75 MILLIGRAM, QD
     Route: 048
  8. VONOPRAZAN FUMARATE [Concomitant]
     Active Substance: VONOPRAZAN FUMARATE
     Indication: Product used for unknown indication
     Dosage: UNK
     Route: 048
  9. OMEPRAZOLE [Concomitant]
     Active Substance: OMEPRAZOLE
     Indication: Product used for unknown indication
     Dosage: UNK
     Route: 041

REACTIONS (8)
  - Immune-mediated enterocolitis [Recovering/Resolving]
  - Renal impairment [Unknown]
  - Shock [Unknown]
  - Gastrointestinal haemorrhage [Recovered/Resolved]
  - Blood loss anaemia [Recovered/Resolved]
  - Inflammation [Unknown]
  - Plateletcrit increased [Unknown]
  - Mental disorder [Unknown]

NARRATIVE: CASE EVENT DATE: 20210524
